FAERS Safety Report 8268455-2 (Version None)
Quarter: 2012Q2

REPORT INFORMATION
  Report Type: 
  Country: None (occurrence: None)
  Receive Date: 20120409
  Receipt Date: 20120330
  Transmission Date: 20120825
  Serious: Yes (Other)
  Sender: FDA-Public Use
  Company Number: PHFR2012GB002046

PATIENT
  Sex: Female

DRUGS (5)
  1. LAMOTRGINE [Concomitant]
     Dosage: UNK
  2. AMOXICILLIN [Concomitant]
     Dosage: UNK
  3. CLOZARIL [Suspect]
     Indication: SCHIZOPHRENIA
     Dosage: 150 MG, BID
     Route: 048
     Dates: start: 20120123
  4. CLOZARIL [Suspect]
     Dosage: 100 MG, BID
     Dates: start: 20120326
  5. LAMOTRGINE [Concomitant]
     Dosage: UNK

REACTIONS (3)
  - EAR INFECTION [None]
  - MYOCLONUS [None]
  - ORTHOSTATIC HYPOTENSION [None]
